FAERS Safety Report 18197644 (Version 1)
Quarter: 2020Q3

REPORT INFORMATION
  Report Type: Spontaneous
  Country: US (occurrence: US)
  Receive Date: 20200825
  Receipt Date: 20200825
  Transmission Date: 20201103
  Serious: Yes (Hospitalization)
  Sender: FDA-Public Use
  Company Number: None

PATIENT
  Age: 67 Year
  Sex: Female

DRUGS (11)
  1. HUMIRA [Suspect]
     Active Substance: ADALIMUMAB
     Indication: RHEUMATOID ARTHRITIS
     Route: 058
     Dates: start: 20190122
  2. FLUTICASONE. [Suspect]
     Active Substance: FLUTICASONE
  3. FELDENE [Suspect]
     Active Substance: PIROXICAM
  4. FLUCONAZOLE. [Suspect]
     Active Substance: FLUCONAZOLE
  5. IPRATROPIUM [Suspect]
     Active Substance: IPRATROPIUM
  6. LUNESTA [Suspect]
     Active Substance: ESZOPICLONE
  7. METHOTREXATE. [Suspect]
     Active Substance: METHOTREXATE
  8. AMOX/K CLAV [Suspect]
     Active Substance: AMOXICILLIN\CLAVULANATE POTASSIUM
  9. ACTONEL [Suspect]
     Active Substance: RISEDRONATE SODIUM
  10. ALENDRONATE [Suspect]
     Active Substance: ALENDRONATE SODIUM
  11. PREDNISONE. [Suspect]
     Active Substance: PREDNISONE

REACTIONS (2)
  - Condition aggravated [None]
  - Joint swelling [None]

NARRATIVE: CASE EVENT DATE: 20200610
